FAERS Safety Report 15978527 (Version 1)
Quarter: 2019Q1

REPORT INFORMATION
  Report Type: Report from Study
  Country: IT (occurrence: IT)
  Receive Date: 20190219
  Receipt Date: 20190219
  Transmission Date: 20190418
  Serious: Yes (Hospitalization)
  Sender: FDA-Public Use
  Company Number: IT-TEVA-2019-IT-1012982

PATIENT
  Age: 81 Year
  Sex: Female

DRUGS (7)
  1. TORVAST 20 MG COMPRESSE RIVESTITE CON FILM [Concomitant]
     Route: 048
  2. CARDIOASPIRIN 100 MG COMPRESSE GASTRORESISTENTI [Concomitant]
     Active Substance: ASPIRIN
     Route: 048
  3. HALDOL [Suspect]
     Active Substance: HALOPERIDOL
     Indication: SENILE DEMENTIA
     Dosage: 15 GTT DAILY;
     Route: 048
     Dates: start: 20180915, end: 20190105
  4. ENAPREN 5 MG COMPRESSE [Concomitant]
     Active Substance: ENALAPRIL MALEATE
     Route: 048
  5. QUETIAPINE FUMARATE. [Suspect]
     Active Substance: QUETIAPINE FUMARATE
     Indication: SENILE DEMENTIA
     Dosage: 50 MILLIGRAM DAILY;
     Route: 048
     Dates: start: 20180915, end: 20190105
  6. LOBIVON 5 MG COMPRESSE [Concomitant]
     Route: 048
  7. NITRODERM TTS 5 MG/DIE CEROTTO TRANSDERMICO [Concomitant]
     Route: 062

REACTIONS (1)
  - Psychomotor skills impaired [Recovered/Resolved]

NARRATIVE: CASE EVENT DATE: 20190101
